FAERS Safety Report 4973617-3 (Version None)
Quarter: 2006Q1

REPORT INFORMATION
  Report Type: 
  Country: None (occurrence: None)
  Receive Date: 20060215
  Receipt Date: 20051202
  Transmission Date: 20060701
  Serious: No
  Sender: FDA-Public Use
  Company Number: US200512000738

PATIENT
  Age: 82 Year
  Sex: Male

DRUGS (5)
  1. CIALIS [Suspect]
     Indication: ERECTILE DYSFUNCTION
     Dosage: 20 MG
     Dates: start: 20051201
  2. FLOMAX [Concomitant]
  3. COUMADIN [Concomitant]
  4. DIURETICS [Concomitant]
  5. VITAMINS, OTHER COMBINATIONS [Concomitant]

REACTIONS (1)
  - DRUG INEFFECTIVE [None]
